FAERS Safety Report 4396936-0 (Version None)
Quarter: 2004Q2

REPORT INFORMATION
  Report Type: 
  Country: None (occurrence: None)
  Receive Date: 20040621
  Receipt Date: 20040309
  Transmission Date: 20050107
  Serious: Yes (Other)
  Sender: FDA-Public Use
  Company Number: USA-2004-0013667

PATIENT
  Sex: Female

DRUGS (4)
  1. OXYCONTIN [Suspect]
     Indication: PAIN
     Dosage: 40 MG, Q4H; UNKNOWN
     Route: 065
  2. SOMA [Concomitant]
  3. ZOLOFT [Concomitant]
  4. PREMARIN [Concomitant]

REACTIONS (3)
  - DRUG ABUSER [None]
  - INADEQUATE ANALGESIA [None]
  - STOOL ANALYSIS ABNORMAL [None]
